FAERS Safety Report 6166108-8 (Version None)
Quarter: 2009Q2

REPORT INFORMATION
  Report Type: 
  Country: None (occurrence: None)
  Receive Date: 20090422
  Receipt Date: 20090422
  Transmission Date: 20091009
  Serious: Yes (Death)
  Sender: FDA-Public Use
  Company Number: None

PATIENT
  Age: 72 Year
  Sex: Male
  Weight: 99.7913 kg

DRUGS (1)
  1. WARFARIN SODIUM [Suspect]
     Indication: ATRIAL FIBRILLATION
     Dosage: 2 TABS 4DAYS A WEEK ORAL; 1 1/2 TABS 3 DAYS A WEEK ORAL
     Route: 048
     Dates: start: 20020701, end: 20081101

REACTIONS (8)
  - CENTRAL NERVOUS SYSTEM LESION [None]
  - CEREBRAL HAEMORRHAGE [None]
  - HAEMOPTYSIS [None]
  - HAEMORRHAGE [None]
  - LUNG DISORDER [None]
  - MALAISE [None]
  - MALIGNANT MELANOMA [None]
  - PULMONARY HAEMORRHAGE [None]
